FAERS Safety Report 23748040 (Version 2)
Quarter: 2024Q2

REPORT INFORMATION
  Report Type: Spontaneous
  Country: US (occurrence: US)
  Receive Date: 20240416
  Receipt Date: 20240419
  Transmission Date: 20240715
  Serious: No
  Sender: FDA-Public Use
  Company Number: US-JNJFOC-20240438866

PATIENT
  Age: 17 Year
  Sex: Male

DRUGS (1)
  1. CONCERTA [Suspect]
     Active Substance: METHYLPHENIDATE HYDROCHLORIDE
     Indication: Attention deficit hyperactivity disorder
     Dosage: VARYING DOSAGE OF 72 MG, 60 MG AND 40 MG THERAPY STOP DATE: JUN-2022 OR JUN-2023
     Route: 048

REACTIONS (2)
  - Product dose omission issue [Unknown]
  - Drug ineffective [Unknown]
